FAERS Safety Report 13916082 (Version 3)
Quarter: 2018Q4

REPORT INFORMATION
  Report Type: Spontaneous
  Country: US (occurrence: US)
  Receive Date: 20170829
  Receipt Date: 20181128
  Transmission Date: 20190204
  Serious: Yes (Hospitalization)
  Sender: FDA-Public Use
  Company Number: US-ROCHE-1984402

PATIENT

DRUGS (1)
  1. TNKASE [Suspect]
     Active Substance: TENECTEPLASE
     Indication: ISCHAEMIC STROKE
     Route: 040

REACTIONS (4)
  - Vascular occlusion [Unknown]
  - Cerebral artery occlusion [Unknown]
  - Off label use [Unknown]
  - Intentional product use issue [Unknown]
